FAERS Safety Report 10344421 (Version 1)
Quarter: 2014Q3

REPORT INFORMATION
  Report Type: Spontaneous
  Country: DE (occurrence: DE)
  Receive Date: 20140728
  Receipt Date: 20140728
  Transmission Date: 20150326
  Serious: Yes (Hospitalization)
  Sender: FDA-Public Use
  Company Number: DE-BRISTOL-MYERS SQUIBB COMPANY-21222732

PATIENT
  Sex: Male

DRUGS (1)
  1. ELIQUIS [Suspect]
     Active Substance: APIXABAN
     Dosage: TABS

REACTIONS (2)
  - Cerebrovascular accident [Unknown]
  - Wrong technique in drug usage process [Unknown]
